APPROVED DRUG PRODUCT: ALENDRONATE SODIUM
Active Ingredient: ALENDRONATE SODIUM
Strength: EQ 35MG BASE
Dosage Form/Route: TABLET;ORAL
Application: A090557 | Product #003
Applicant: JUBILANT CADISTA PHARMACEUTICALS INC
Approved: Feb 18, 2010 | RLD: No | RS: No | Type: DISCN